FAERS Safety Report 4551901-5 (Version None)
Quarter: 2005Q1

REPORT INFORMATION
  Report Type: 
  Country: None (occurrence: None)
  Receive Date: 20050110
  Receipt Date: 20041227
  Transmission Date: 20050727
  Serious: Yes (Life-Threatening)
  Sender: FDA-Public Use
  Company Number: 2004118673

PATIENT
  Age: 29 Year
  Sex: Male
  Weight: 76.5 kg

DRUGS (6)
  1. ZIPRASIDONE [Suspect]
     Indication: SCHIZOPHRENIA
     Dosage: 160 MG (80 MG, 2 IN 1 D),ORAL
     Route: 048
     Dates: start: 20041211, end: 20041223
  2. CLONAZEPAM [Concomitant]
  3. TRIHEXYPHENIDYL HYDROCHORIDE [Concomitant]
  4. PHENOLPHTHALEIN              (PHENOLPHTHALEIN) [Concomitant]
  5. ALL OTHER THERAPEUTIC PRODUCTS [Concomitant]
  6. RISPERDAL [Concomitant]

REACTIONS (1)
  - NEUROLEPTIC MALIGNANT SYNDROME [None]
